FAERS Safety Report 12781408 (Version 2)
Quarter: 2018Q1

REPORT INFORMATION
  Report Type: Report from Study
  Country: BR (occurrence: BR)
  Receive Date: 20160926
  Receipt Date: 20180104
  Transmission Date: 20180508
  Serious: Yes (Life-Threatening, Other)
  Sender: FDA-Public Use
  Company Number: BR-ALEXION PHARMACEUTICALS INC.-A201607045

PATIENT
  Age: 1 Year
  Sex: Female
  Weight: 9.94 kg

DRUGS (8)
  1. SEBELIPASE ALFA [Suspect]
     Active Substance: SEBELIPASE ALFA
     Dosage: 3 MG/KG, QW
     Route: 042
     Dates: start: 201607
  2. SEBELIPASE ALFA [Suspect]
     Active Substance: SEBELIPASE ALFA
     Dosage: 5 MG/KG, TWICE A WEEK
     Route: 065
  3. SEBELIPASE ALFA [Suspect]
     Active Substance: SEBELIPASE ALFA
     Indication: LYSOSOMAL ACID LIPASE DEFICIENCY
     Dosage: 1 MG/KG, QW
     Route: 042
     Dates: start: 20160307
  4. SEBELIPASE ALFA [Suspect]
     Active Substance: SEBELIPASE ALFA
     Dosage: 4 MG/KG, QW
     Route: 065
  5. SEBELIPASE ALFA [Suspect]
     Active Substance: SEBELIPASE ALFA
     Dosage: 5 MG/KG, WEEKLY
     Route: 065
  6. SEBELIPASE ALFA [Suspect]
     Active Substance: SEBELIPASE ALFA
     Dosage: 3 MG/KG, QW
     Route: 042
     Dates: start: 20160311
  7. SEBELIPASE ALFA [Suspect]
     Active Substance: SEBELIPASE ALFA
     Dosage: 5 MG/KG, WEEKLY
     Route: 065
  8. SEBELIPASE ALFA [Suspect]
     Active Substance: SEBELIPASE ALFA
     Dosage: CLOSER TO 5 MG/KG, QW
     Route: 042
     Dates: start: 201607

REACTIONS (24)
  - Adrenomegaly [Unknown]
  - High density lipoprotein decreased [Unknown]
  - C-reactive protein increased [Unknown]
  - Vomiting [Unknown]
  - Diarrhoea [Unknown]
  - Blood creatinine decreased [Unknown]
  - Aspartate aminotransferase increased [Unknown]
  - Blood pH decreased [Unknown]
  - Infusion related reaction [Unknown]
  - Infection [Unknown]
  - Hepatomegaly [Unknown]
  - Blood triglycerides increased [Unknown]
  - Sepsis [Unknown]
  - Malabsorption [Unknown]
  - Food allergy [Unknown]
  - Activated partial thromboplastin time prolonged [Unknown]
  - Malnutrition [Unknown]
  - Platelet count increased [Unknown]
  - Dyslipidaemia [Unknown]
  - Lipidosis [Unknown]
  - Blood lactic acid increased [Unknown]
  - Weight decreased [Unknown]
  - Gastrointestinal inflammation [Unknown]
  - Abdominal distension [Unknown]

NARRATIVE: CASE EVENT DATE: 20171202
